FAERS Safety Report 7362671-X (Version None)
Quarter: 2011Q1

REPORT INFORMATION
  Report Type: 
  Country: None (occurrence: None)
  Receive Date: 20110321
  Receipt Date: 20110311
  Transmission Date: 20110831
  Serious: Yes (Death, Hospitalization)
  Sender: FDA-Public Use
  Company Number: US-BIOGENIDEC-2011BI009241

PATIENT
  Age: 70 Year
  Sex: Female

DRUGS (2)
  1. TYSABRI [Suspect]
     Indication: MULTIPLE SCLEROSIS
     Route: 042
     Dates: start: 20100614, end: 20110222
  2. RECLAST [Concomitant]
     Indication: OSTEOPOROSIS

REACTIONS (3)
  - PNEUMONIA [None]
  - SEPSIS [None]
  - SMALL INTESTINAL OBSTRUCTION [None]
